FAERS Safety Report 8100444-0 (Version None)
Quarter: 2012Q1

REPORT INFORMATION
  Report Type: 
  Country: None (occurrence: None)
  Receive Date: 20120129
  Receipt Date: 20111104
  Transmission Date: 20120608
  Serious: Yes (Hospitalization)
  Sender: FDA-Public Use
  Company Number: US-ABBOTT-11P-163-0870628-00

PATIENT
  Sex: Female

DRUGS (3)
  1. HUMIRA [Suspect]
     Route: 058
     Dates: start: 20111001
  2. HUMIRA [Suspect]
     Indication: CROHN'S DISEASE
     Route: 058
     Dates: start: 20090601, end: 20110801
  3. BACTRIM DS [Suspect]
     Indication: PHARYNGITIS STREPTOCOCCAL
     Dates: start: 20110801, end: 20110801

REACTIONS (6)
  - PHARYNGITIS [None]
  - DIARRHOEA [None]
  - THERAPEUTIC RESPONSE UNEXPECTED [None]
  - CLOSTRIDIAL INFECTION [None]
  - OROPHARYNGEAL PAIN [None]
  - UVEITIS [None]
